FAERS Safety Report 9337408 (Version 1)
Quarter: 2013Q2

REPORT INFORMATION
  Report Type: Spontaneous
  Country: IT (occurrence: IT)
  Receive Date: 20130607
  Receipt Date: 20130607
  Transmission Date: 20140414
  Serious: Yes (Other)
  Sender: FDA-Public Use
  Company Number: IT-VERTEX PHARMACEUTICALS INC-2013-006837

PATIENT
  Age: 63 Year
  Sex: Male
  Weight: 67 kg

DRUGS (3)
  1. INCIVO [Suspect]
     Indication: CHRONIC HEPATITIS C
     Dosage: 2250 MG, QD
     Route: 048
     Dates: start: 20130322, end: 20130603
  2. COPEGUS [Suspect]
     Indication: CHRONIC HEPATITIS C
     Dosage: DOSAGE FORM: COATED TABLET
     Route: 048
     Dates: start: 20130322, end: 20130503
  3. PEG INTRON [Suspect]
     Indication: CHRONIC HEPATITIS C
     Dosage: DOSAGE FORM: INJECTION
     Route: 058
     Dates: start: 20130322, end: 20130509

REACTIONS (5)
  - Rash generalised [Recovered/Resolved]
  - Constipation [Recovered/Resolved]
  - Pruritus generalised [Recovered/Resolved]
  - Anal pruritus [Recovered/Resolved]
  - Rash erythematous [Unknown]
